FAERS Safety Report 24454215 (Version 2)
Quarter: 2024Q4

REPORT INFORMATION
  Report Type: Report from Study
  Country: US (occurrence: US)
  Receive Date: 20241017
  Receipt Date: 20241018
  Transmission Date: 20250114
  Serious: No
  Sender: ROCHE
  Company Number: US-ROCHE-3471873

PATIENT
  Age: 69 Year
  Sex: Male

DRUGS (9)
  1. RITUXAN HYCELA [Suspect]
     Active Substance: HYALURONIDASE (HUMAN RECOMBINANT)\RITUXIMAB
     Indication: Rheumatoid arthritis
     Route: 041
  2. ATORVASTATIN [Concomitant]
     Active Substance: ATORVASTATIN
  3. CARVEDILOL [Concomitant]
     Active Substance: CARVEDILOL
  4. RAMIPRIL [Concomitant]
     Active Substance: RAMIPRIL
  5. ALLOPURINOL [Concomitant]
     Active Substance: ALLOPURINOL
  6. FOLIC ACID [Concomitant]
     Active Substance: FOLIC ACID
  7. RITUXAN [Concomitant]
     Active Substance: RITUXIMAB
     Route: 042
  8. METHOTREXATE [Concomitant]
     Active Substance: METHOTREXATE
  9. EZETIMIBE [Concomitant]
     Active Substance: EZETIMIBE

REACTIONS (2)
  - Off label use [Unknown]
  - No adverse event [Unknown]
